FAERS Safety Report 18946164 (Version 1)
Quarter: 2021Q1

REPORT INFORMATION
  Report Type: Spontaneous
  Country: CA (occurrence: CA)
  Receive Date: 20210226
  Receipt Date: 20210226
  Transmission Date: 20210420
  Serious: Yes (Life-Threatening, Other)
  Sender: FDA-Public Use
  Company Number: CA-JNJFOC-20210241263

PATIENT
  Age: 1 Month
  Sex: Male

DRUGS (1)
  1. TRAMACET [Suspect]
     Active Substance: ACETAMINOPHEN\TRAMADOL
     Indication: PAIN
     Route: 063

REACTIONS (2)
  - Exposure via breast milk [Unknown]
  - Neonatal respiratory depression [Unknown]
